FAERS Safety Report 22820759 (Version 2)
Quarter: 2023Q4

REPORT INFORMATION
  Report Type: Spontaneous
  Country: ES (occurrence: ES)
  Receive Date: 20230814
  Receipt Date: 20231012
  Transmission Date: 20240109
  Serious: Yes (Hospitalization)
  Sender: FDA-Public Use
  Company Number: ES-GILEAD-2023-0637587

PATIENT
  Sex: Female

DRUGS (41)
  1. PACLITAXEL [Suspect]
     Active Substance: PACLITAXEL
     Indication: Non-small cell lung cancer
     Dosage: 221.8 MG
     Dates: start: 20230605, end: 20230605
  2. PACLITAXEL [Suspect]
     Active Substance: PACLITAXEL
     Dosage: 295.8 MG
     Dates: start: 20230505, end: 20230505
  3. CARBOPLATIN [Suspect]
     Active Substance: CARBOPLATIN
     Indication: Non-small cell lung cancer
     Dosage: 459 MG?PFT-22010?ROA-20045000
     Route: 042
     Dates: start: 20230505, end: 20230605
  4. ZIMBERELIMAB [Suspect]
     Active Substance: ZIMBERELIMAB
     Indication: Non-small cell lung cancer
     Dosage: 360 MG
     Dates: start: 20230505, end: 20230605
  5. DOMVANALIMAB [Suspect]
     Active Substance: DOMVANALIMAB
     Indication: Non-small cell lung cancer
     Dosage: 1200 MG
     Dates: start: 20230505, end: 20230605
  6. METAMIZOLE [Concomitant]
     Active Substance: METAMIZOLE
     Indication: Endocarditis
     Dosage: ROA-20045000
     Dates: start: 20230612, end: 20230630
  7. METAMIZOLE [Concomitant]
     Active Substance: METAMIZOLE
     Dosage: ROA-20053000
     Dates: start: 20230630
  8. BROMAZEPAM [Concomitant]
     Active Substance: BROMAZEPAM
     Indication: Prophylaxis
     Dosage: ROA-20053000
     Dates: start: 20230629
  9. AMOXICILLIN\CLAVULANIC ACID [Concomitant]
     Active Substance: AMOXICILLIN\CLAVULANIC ACID
     Indication: Endocarditis
     Dosage: ROA-20053000
     Dates: start: 20230613, end: 20230614
  10. OMEPRAZOLE [Concomitant]
     Active Substance: OMEPRAZOLE
     Indication: Prophylaxis
     Dosage: ROA-20053000
     Dates: start: 20230612, end: 20230616
  11. ONDANSETRON [Concomitant]
     Active Substance: ONDANSETRON
     Indication: Prophylaxis
     Dosage: ROA-20053000
     Dates: start: 20230505
  12. POTASSIUM CHLORIDE [Concomitant]
     Active Substance: POTASSIUM CHLORIDE
     Indication: Endocarditis
     Dosage: ROA-20053000
     Dates: start: 20230616
  13. POTASSIUM CHLORIDE [Concomitant]
     Active Substance: POTASSIUM CHLORIDE
     Dosage: ROA-20053000
     Dates: start: 20230616, end: 20230705
  14. BUDESONIDE\FORMOTEROL [Concomitant]
     Active Substance: BUDESONIDE\FORMOTEROL
     Indication: Endocarditis
     Dosage: ROA-20020000
     Route: 055
     Dates: start: 20230613, end: 20230616
  15. LANSOPRAZOLE [Concomitant]
     Active Substance: LANSOPRAZOLE
     Indication: Gastrooesophageal reflux disease
     Dosage: ROA-20053000
     Dates: start: 20141031
  16. ELIQUIS [Concomitant]
     Active Substance: APIXABAN
     Indication: Ischaemic stroke
     Dosage: ROA-20053000
     Dates: start: 20190725
  17. CEFTRIAXONE [Concomitant]
     Active Substance: CEFTRIAXONE\CEFTRIAXONE SODIUM
     Indication: Endocarditis
     Dosage: ROA-20045000
     Dates: start: 20230614
  18. CEFTRIAXONE [Concomitant]
     Active Substance: CEFTRIAXONE\CEFTRIAXONE SODIUM
     Dosage: ROA-20045000
     Dates: start: 20230614, end: 20230711
  19. FUROSEMIDE [Concomitant]
     Active Substance: FUROSEMIDE
     Indication: Hypertension
     Dosage: ROA-20053000
     Dates: start: 20210526
  20. ALBUTEROL [Concomitant]
     Active Substance: ALBUTEROL
     Indication: Chronic obstructive pulmonary disease
     Dosage: ROA-20020000
     Route: 055
     Dates: start: 20090225
  21. VANCOMYCIN [Concomitant]
     Active Substance: VANCOMYCIN
     Indication: Endocarditis
     Dosage: ROA-20045000
     Dates: start: 20230613, end: 20230614
  22. ENALAPRIL [Concomitant]
     Active Substance: ENALAPRIL
     Indication: Hypertension
     Dosage: ROA-20053000
     Dates: start: 20190725
  23. APIXABAN [Concomitant]
     Active Substance: APIXABAN
     Indication: Ischaemic stroke
     Dosage: ROA-20053000
     Dates: start: 20190725
  24. BECLOMETHASONE DIPROPIONATE\FORMOTEROL FUMARATE\GLYCOPYRROLATE [Concomitant]
     Active Substance: BECLOMETHASONE DIPROPIONATE\FORMOTEROL FUMARATE\GLYCOPYRROLATE
     Indication: Chronic obstructive pulmonary disease
     Dosage: ROA-20020000
     Route: 055
     Dates: start: 20230308
  25. BECLOMETHASONE DIPROPIONATE\FORMOTEROL FUMARATE\GLYCOPYRROLATE [Concomitant]
     Active Substance: BECLOMETHASONE DIPROPIONATE\FORMOTEROL FUMARATE\GLYCOPYRROLATE
     Dosage: ROA-20020000
     Route: 055
     Dates: start: 20230308, end: 20230719
  26. BISOPROLOL [Concomitant]
     Active Substance: BISOPROLOL\BISOPROLOL FUMARATE
     Indication: Chronic obstructive pulmonary disease
     Dosage: ROA-20053000
     Dates: start: 20191202
  27. FILGRASTIM [Concomitant]
     Active Substance: FILGRASTIM
     Indication: Febrile neutropenia
     Dosage: ROA-20066000
     Dates: start: 20230614, end: 20230616
  28. ASPIRIN [Concomitant]
     Active Substance: ASPIRIN
     Indication: Ischaemic stroke
     Dosage: ROA-20053000
     Dates: start: 20230308
  29. GENTAMICIN [Concomitant]
     Active Substance: GENTAMICIN
     Indication: Endocarditis
     Dosage: ROA-20045000
     Dates: start: 20230614, end: 20230627
  30. LORMETAZEPAM [Concomitant]
     Active Substance: LORMETAZEPAM
     Indication: Prophylaxis
     Dosage: ROA-20053000
     Dates: start: 20221020
  31. ACETAMINOPHEN [Concomitant]
     Active Substance: ACETAMINOPHEN
     Indication: Chest pain
     Dosage: ROA-20053000
     Dates: start: 20210423, end: 20230719
  32. ACETAMINOPHEN [Concomitant]
     Active Substance: ACETAMINOPHEN
     Indication: Endocarditis
     Dosage: ROA-20053000
     Dates: start: 20210423, end: 20230719
  33. ACETAMINOPHEN [Concomitant]
     Active Substance: ACETAMINOPHEN
     Dosage: ROA-20045000
     Dates: start: 20230612, end: 20230630
  34. ATORVASTATIN [Concomitant]
     Active Substance: ATORVASTATIN
     Indication: Dyslipidaemia
     Dosage: ROA-20053000
     Dates: start: 20170918
  35. CALCIFEDIOL [Concomitant]
     Active Substance: CALCIFEDIOL
     Indication: Supplementation therapy
     Dosage: ROA-20053000
     Dates: start: 20191202
  36. METOCLOPRAMIDE HYDROCHLORIDE [Concomitant]
     Active Substance: METOCLOPRAMIDE HYDROCHLORIDE
     Indication: Prophylaxis
     Dosage: ROA-20053000
     Dates: start: 20230505
  37. FAMOTIDINE [Concomitant]
     Active Substance: FAMOTIDINE
     Indication: Premedication
     Dosage: ROA-20053000
     Dates: start: 20230505
  38. FAMOTIDINE [Concomitant]
     Active Substance: FAMOTIDINE
     Dosage: ROA-20053000
     Dates: start: 20230505, end: 20230719
  39. IRON [Concomitant]
     Active Substance: IRON
     Indication: Platelet count decreased
     Dosage: ROA-20053000
     Dates: start: 20230529
  40. CIPROFLOXACIN [Concomitant]
     Active Substance: CIPROFLOXACIN
     Indication: Endocarditis
     Dosage: ROA-20045000
     Dates: start: 20230613, end: 20230614
  41. LEVOTHYROXINE [Concomitant]
     Active Substance: LEVOTHYROXINE
     Indication: Hypothyroidism
     Dosage: ROA-20053000
     Dates: start: 20221020

REACTIONS (1)
  - Ataxia [Recovered/Resolved]

NARRATIVE: CASE EVENT DATE: 20230711
